FAERS Safety Report 7224677-0 (Version None)
Quarter: 2011Q1

REPORT INFORMATION
  Report Type: 
  Country: None (occurrence: None)
  Receive Date: 20110104
  Receipt Date: 20101220
  Transmission Date: 20110831
  Serious: Yes (Hospitalization)
  Sender: FDA-Public Use
  Company Number: 1000017899

PATIENT
  Age: 74 Year
  Sex: Female

DRUGS (4)
  1. TRIATEC (RAMIPRIL) [Suspect]
     Dosage: 1.25 MG (1.25 MG, 1 IN 1 D), ORAL
     Route: 048
     Dates: start: 20100501, end: 20100501
  2. LERCAN (LERCANIDIPINE IHYDROCHLORIDE) (LERCANIDIPINE HYDROCHLORIDE) [Concomitant]
  3. NEBIVOLOL HCL [Suspect]
     Dosage: 5 MG (5 MG, 1 IN 1 D), ORAL
     Route: 048
  4. ALPRESS (PRAZOSIN HYDROCHLORIDE) (PRAZOSIN HYDROCHLORIDE) [Concomitant]

REACTIONS (3)
  - HEADACHE [None]
  - VOMITING [None]
  - ANGIOEDEMA [None]
